FAERS Safety Report 4700706-0 (Version None)
Quarter: 2005Q2

REPORT INFORMATION
  Report Type: 
  Country: None (occurrence: None)
  Receive Date: 20050627
  Receipt Date: 20050617
  Transmission Date: 20051028
  Serious: Yes (Hospitalization)
  Sender: FDA-Public Use
  Company Number: 200510429BFR

PATIENT
  Age: 69 Year
  Sex: Male

DRUGS (5)
  1. CIFLOX (CIPROFLOXACIN) [Suspect]
     Dosage: ORAL
     Route: 048
     Dates: start: 20050318, end: 20050421
  2. CITALOPRAM HYDROBROMIDE [Suspect]
     Dosage: ORAL
     Route: 048
     Dates: start: 20050318, end: 20050421
  3. AVLOCARDYL [Concomitant]
  4. CAPTEA [Concomitant]
  5. XATRAL [Concomitant]

REACTIONS (3)
  - CHRONIC LYMPHOCYTIC LEUKAEMIA [None]
  - DRUG RASH WITH EOSINOPHILIA AND SYSTEMIC SYMPTOMS [None]
  - FACE OEDEMA [None]
